FAERS Safety Report 9320199 (Version 1)
Quarter: 2013Q2

REPORT INFORMATION
  Report Type: Spontaneous
  Country: US (occurrence: US)
  Receive Date: 20130530
  Receipt Date: 20130530
  Transmission Date: 20140414
  Serious: Yes (Hospitalization)
  Sender: FDA-Public Use
  Company Number: US-MERCK-1305USA016859

PATIENT
  Sex: Female

DRUGS (2)
  1. JANUVIA [Suspect]
  2. GLIPIZIDE [Concomitant]

REACTIONS (1)
  - Drug ineffective [Unknown]
